FAERS Safety Report 4909480-6 (Version None)
Quarter: 2006Q1

REPORT INFORMATION
  Report Type: 
  Country: None (occurrence: None)
  Receive Date: 20060213
  Receipt Date: 20060106
  Transmission Date: 20060701
  Serious: Yes (Hospitalization)
  Sender: FDA-Public Use
  Company Number: US-MERCK-0601USA00848

PATIENT
  Age: 50 Year
  Sex: Male
  Weight: 93 kg

DRUGS (9)
  1. VIOXX [Suspect]
     Indication: PAIN
     Route: 048
     Dates: start: 20030901, end: 20040301
  2. NEURONTIN [Concomitant]
     Route: 065
  3. AMBIEN [Concomitant]
     Route: 065
  4. PROTONIX [Concomitant]
     Route: 065
  5. DIGITEK [Concomitant]
     Route: 065
  6. DIATX [Concomitant]
     Route: 065
  7. PREDNISONE [Concomitant]
     Route: 065
  8. [THERAPY UNSPECIFIED] [Concomitant]
     Route: 065
  9. THIAMINE [Concomitant]
     Route: 065

REACTIONS (3)
  - ABASIA [None]
  - CEREBROVASCULAR ACCIDENT [None]
  - COMA [None]
